FAERS Safety Report 13201971 (Version 1)
Quarter: 2017Q1

REPORT INFORMATION
  Report Type: Report from Study
  Country: US (occurrence: US)
  Receive Date: 20170208
  Receipt Date: 20170208
  Transmission Date: 20170428
  Serious: No
  Sender: FDA-Public Use
  Company Number: US-AMGEN-USASP2016071847

PATIENT
  Age: 66 Year
  Sex: Male

DRUGS (6)
  1. HYDROXYDAUNORUBICIN [Concomitant]
     Active Substance: DOXORUBICIN
     Indication: LYMPHOMA
     Dosage: UNK
  2. NEULASTA [Suspect]
     Active Substance: PEGFILGRASTIM
     Indication: PRODUCT USED FOR UNKNOWN INDICATION
     Dosage: UNK UNK, UNK
     Route: 065
  3. PREDNISOLONE. [Concomitant]
     Active Substance: PREDNISOLONE
     Indication: LYMPHOMA
     Dosage: UNK
  4. ONCOVIN [Concomitant]
     Active Substance: VINCRISTINE SULFATE
     Indication: LYMPHOMA
     Dosage: UNK
  5. CYCLOPHOSPHAMIDE. [Concomitant]
     Active Substance: CYCLOPHOSPHAMIDE
     Indication: LYMPHOMA
     Dosage: UNK
  6. ETOPOSIDE. [Concomitant]
     Active Substance: ETOPOSIDE
     Indication: LYMPHOMA
     Dosage: UNK

REACTIONS (1)
  - Inappropriate schedule of drug administration [Unknown]
